FAERS Safety Report 18212636 (Version 1)
Quarter: 2020Q3

REPORT INFORMATION
  Report Type: Spontaneous
  Country: US (occurrence: US)
  Receive Date: 20200831
  Receipt Date: 20200831
  Transmission Date: 20201103
  Serious: No
  Sender: FDA-Public Use
  Company Number: US-EMD SERONO-7065680

PATIENT
  Sex: Male

DRUGS (1)
  1. REBIF [Suspect]
     Active Substance: INTERFERON BETA-1A
     Indication: MULTIPLE SCLEROSIS
     Route: 058
     Dates: start: 20100809

REACTIONS (8)
  - Skin laceration [Unknown]
  - Injection site erythema [Unknown]
  - Drug dependence [Unknown]
  - Fall [Unknown]
  - Condition aggravated [Unknown]
  - Alopecia [Unknown]
  - Alcoholism [Unknown]
  - Progressive multiple sclerosis [Unknown]
